FAERS Safety Report 5504769-4 (Version None)
Quarter: 2007Q4

REPORT INFORMATION
  Report Type: 
  Country: None (occurrence: None)
  Receive Date: 20071031
  Receipt Date: 20071031
  Transmission Date: 20080405
  Serious: Yes (Life-Threatening)
  Sender: FDA-Public Use
  Company Number: None

PATIENT
  Age: 57 Year
  Sex: Female
  Weight: 49.8957 kg

DRUGS (1)
  1. ST JOHN'S WORT 300 MG CAPLETS 300 MG LONGS DRUGS [Suspect]
     Indication: ROUTINE HEALTH MAINTENANCE
     Dosage: 300 MG VARIES PO
     Route: 048
     Dates: start: 19850101, end: 20071031

REACTIONS (4)
  - FOREIGN BODY TRAUMA [None]
  - MEDICATION ERROR [None]
  - OBSTRUCTIVE AIRWAYS DISORDER [None]
  - PHARMACEUTICAL PRODUCT COMPLAINT [None]
